FAERS Safety Report 4883239-0 (Version None)
Quarter: 2006Q1

REPORT INFORMATION
  Report Type: 
  Country: None (occurrence: None)
  Receive Date: 20060112
  Receipt Date: 20060103
  Transmission Date: 20060701
  Serious: Yes (Death)
  Sender: FDA-Public Use
  Company Number: 13170

PATIENT
  Age: 74 Year
  Sex: Male

DRUGS (4)
  1. PAMIDRONATE DISODIUM [Suspect]
     Indication: HYPERCALCAEMIA OF MALIGNANCY
     Dosage: 90 MG IV
     Route: 042
     Dates: start: 20051201, end: 20051201
  2. OMEPRAZOLE [Concomitant]
  3. DICLOFENAC [Concomitant]
  4. FLUCONAZOLE [Concomitant]

REACTIONS (3)
  - BILE DUCT CANCER [None]
  - COAGULOPATHY [None]
  - HAEMATEMESIS [None]
